FAERS Safety Report 13164758 (Version 1)
Quarter: 2017Q1

REPORT INFORMATION
  Report Type: Spontaneous
  Country: TW (occurrence: TW)
  Receive Date: 20170130
  Receipt Date: 20170130
  Transmission Date: 20170428
  Serious: Yes (Hospitalization)
  Sender: FDA-Public Use
  Company Number: PHHY2017TW008548

PATIENT
  Age: 55 Year
  Sex: Male

DRUGS (6)
  1. LITHIUM. [Suspect]
     Active Substance: LITHIUM
     Dosage: 600 MG, QD
     Route: 065
  2. LITHIUM. [Suspect]
     Active Substance: LITHIUM
     Dosage: 900 MG, QD
     Route: 065
  3. OLANZAPINE. [Suspect]
     Active Substance: OLANZAPINE
     Dosage: 10 MG, QD
     Route: 065
  4. OLANZAPINE. [Suspect]
     Active Substance: OLANZAPINE
     Dosage: 20 MG, QD
     Route: 065
  5. LITHIUM. [Suspect]
     Active Substance: LITHIUM
     Indication: MANIA
     Dosage: COMBINATION WITH OLANZAPINE AT A DOSE OF 5 TO 15 MG/DAY
     Route: 065
  6. OLANZAPINE. [Suspect]
     Active Substance: OLANZAPINE
     Indication: MANIA
     Dosage: COMBINATION WITH LITHIUM AT A DOSE OF 5 TO 15 MG/DAY
     Route: 065

REACTIONS (5)
  - Delusion of grandeur [Unknown]
  - Insomnia [Unknown]
  - Euphoric mood [Unknown]
  - Mania [Unknown]
  - Logorrhoea [Unknown]
